FAERS Safety Report 4849590-5 (Version None)
Quarter: 2005Q4

REPORT INFORMATION
  Report Type: 
  Country: None (occurrence: None)
  Receive Date: 20051207
  Receipt Date: 20051121
  Transmission Date: 20060501
  Serious: Yes (Death, Hospitalization)
  Sender: FDA-Public Use
  Company Number: 2005EU001227

PATIENT
  Age: 59 Year
  Sex: Male

DRUGS (5)
  1. FK506 (TACROLIMUS) CAPSULE [Suspect]
     Indication: LIVER TRANSPLANT
     Dosage: 3.00 MG, UID/QD, ORAL
     Route: 048
     Dates: start: 20041213, end: 20050420
  2. PREDNISONE [Suspect]
     Indication: LIVER TRANSPLANT
     Dosage: 10.00 MG, UID/QD,
     Dates: start: 20041213
  3. INSULIN [Concomitant]
  4. MORPHINE [Concomitant]
  5. PANTOPRAZOLE SODIUM [Concomitant]

REACTIONS (18)
  - ASCITES [None]
  - BLOOD CULTURE POSITIVE [None]
  - CEREBRAL ATROPHY [None]
  - CRYPTOCOCCOSIS [None]
  - CYTOLOGY ABNORMAL [None]
  - DEPRESSED LEVEL OF CONSCIOUSNESS [None]
  - DIARRHOEA [None]
  - EOSINOPHILIA [None]
  - LIVER TRANSPLANT REJECTION [None]
  - LYMPHOMA [None]
  - LYMPHOPROLIFERATIVE DISORDER [None]
  - MENINGITIS [None]
  - MULTI-ORGAN FAILURE [None]
  - PERITONEAL EFFUSION [None]
  - RENAL FAILURE [None]
  - STAPHYLOCOCCAL INFECTION [None]
  - STREPTOCOCCAL INFECTION [None]
  - TREMOR [None]
